FAERS Safety Report 8791652 (Version 1)
Quarter: 2012Q4

REPORT INFORMATION
  Report Type: 
  Country: US (occurrence: US)
  Receive Date: 20120918
  Receipt Date: 20120918
  Transmission Date: 20130627
  Serious: Yes (Other)
  Sender: FDA-Public Use
  Company Number: US-PFIZER INC-2012228187

PATIENT
  Sex: Male

DRUGS (1)
  1. ACCUPRIL [Suspect]
     Dosage: UNK
     Dates: start: 20100901

REACTIONS (1)
  - Cerebrovascular accident [Unknown]
